FAERS Safety Report 15774417 (Version 1)
Quarter: 2018Q4

REPORT INFORMATION
  Report Type: Spontaneous
  Country: US (occurrence: US)
  Receive Date: 20181229
  Receipt Date: 20181229
  Transmission Date: 20190205
  Serious: No
  Sender: FDA-Public Use
  Company Number: US-TEVA-2018-US-983566

PATIENT
  Sex: Female

DRUGS (1)
  1. CLONAZEPAM ODT [Suspect]
     Active Substance: CLONAZEPAM
     Indication: ANXIETY
     Dosage: ORAL DISPERSIBLE TABLETS
     Route: 065
     Dates: start: 2018

REACTIONS (5)
  - Drug effect decreased [Unknown]
  - Product physical issue [Unknown]
  - Product taste abnormal [Unknown]
  - Foreign body in respiratory tract [Unknown]
  - Product use complaint [Unknown]
